FAERS Safety Report 14019607 (Version 2)
Quarter: 2017Q4

REPORT INFORMATION
  Report Type: Spontaneous
  Country: US (occurrence: US)
  Receive Date: 20170928
  Receipt Date: 20171027
  Transmission Date: 20180321
  Serious: Yes (Hospitalization)
  Sender: FDA-Public Use
  Company Number: US-ASTRAZENECA-2017SE97666

PATIENT
  Age: 960 Month
  Sex: Male
  Weight: 52.6 kg

DRUGS (4)
  1. SYMBICORT [Suspect]
     Active Substance: BUDESONIDE\FORMOTEROL FUMARATE DIHYDRATE
     Dosage: ONLY ONCE A DAY
     Route: 055
     Dates: start: 201610
  2. TUDORZA PRESSAIR [Suspect]
     Active Substance: ACLIDINIUM BROMIDE
     Indication: CHRONIC OBSTRUCTIVE PULMONARY DISEASE
     Dosage: 400 MCG, ONE PUFF ONCE A DAY
     Route: 055
  3. ASMANEX [Concomitant]
     Active Substance: MOMETASONE FUROATE
     Route: 055
  4. TUDORZA PRESSAIR [Suspect]
     Active Substance: ACLIDINIUM BROMIDE
     Indication: CHRONIC OBSTRUCTIVE PULMONARY DISEASE
     Dosage: 400 MCG, ONE PUFF TWICE A DAY
     Route: 055

REACTIONS (8)
  - Pneumonia [Unknown]
  - Intentional device misuse [Unknown]
  - Device issue [Unknown]
  - Circumstance or information capable of leading to medication error [Unknown]
  - General physical health deterioration [Unknown]
  - Dyspnoea [Unknown]
  - Product use issue [Recovered/Resolved]
  - Intentional product misuse [Unknown]

NARRATIVE: CASE EVENT DATE: 201610
